FAERS Safety Report 15534802 (Version 1)
Quarter: 2018Q4

REPORT INFORMATION
  Report Type: Spontaneous
  Country: US (occurrence: US)
  Receive Date: 20181022
  Receipt Date: 20181022
  Transmission Date: 20190205
  Serious: No
  Sender: FDA-Public Use
  Company Number: US-TEVA-2018-US-965205

PATIENT
  Age: 58 Year

DRUGS (1)
  1. DOXYCYCLINE. [Suspect]
     Active Substance: DOXYCYCLINE
     Route: 065

REACTIONS (3)
  - Anxiety [Unknown]
  - Agitation [Unknown]
  - Mood altered [Unknown]

NARRATIVE: CASE EVENT DATE: 2017
